FAERS Safety Report 16692680 (Version 4)
Quarter: 2019Q4

REPORT INFORMATION
  Report Type: Spontaneous
  Country: US (occurrence: US)
  Receive Date: 20190812
  Receipt Date: 20191028
  Transmission Date: 20200122
  Serious: No
  Sender: FDA-Public Use
  Company Number: US-PFIZER INC-2019341958

PATIENT
  Age: 79 Year
  Sex: Male
  Weight: 91 kg

DRUGS (1)
  1. LYRICA [Suspect]
     Active Substance: PREGABALIN
     Indication: DIABETES MELLITUS
     Dosage: 100 MG, 3X/DAY
     Route: 048
     Dates: start: 2018, end: 201906

REACTIONS (6)
  - Oesophageal disorder [Unknown]
  - Product use in unapproved indication [Unknown]
  - Malaise [Unknown]
  - Off label use [Unknown]
  - Dysphagia [Unknown]
  - Eating disorder [Unknown]

NARRATIVE: CASE EVENT DATE: 2018
